FAERS Safety Report 7898610-2 (Version None)
Quarter: 2011Q4

REPORT INFORMATION
  Report Type: 
  Country: None (occurrence: None)
  Receive Date: 20111107
  Receipt Date: 20111107
  Transmission Date: 20120403
  Serious: Yes (Hospitalization)
  Sender: FDA-Public Use
  Company Number: None

PATIENT
  Age: 54 Year
  Sex: Female
  Weight: 58.2 kg

DRUGS (1)
  1. EVEROLIMUS [Suspect]
     Indication: RENAL CANCER
     Dosage: 10MG
     Route: 048
     Dates: start: 20110920, end: 20111010

REACTIONS (4)
  - RENAL FAILURE ACUTE [None]
  - VOMITING [None]
  - DECREASED APPETITE [None]
  - NAUSEA [None]
